FAERS Safety Report 12273172 (Version 1)
Quarter: 2016Q2

REPORT INFORMATION
  Report Type: Spontaneous
  Country: US (occurrence: US)
  Receive Date: 20160415
  Receipt Date: 20160415
  Transmission Date: 20160815
  Serious: No
  Sender: FDA-Public Use
  Company Number: US-ROCHE-755850

PATIENT
  Age: 38 Year
  Sex: Male

DRUGS (2)
  1. PEGASYS [Suspect]
     Active Substance: PEGINTERFERON ALFA-2A
     Indication: HEPATITIS C
     Dosage: PRE FILLED SYRINGE
     Route: 058
     Dates: start: 20100918, end: 20110227
  2. COPEGUS [Suspect]
     Active Substance: RIBAVIRIN
     Indication: HEPATITIS C
     Dosage: DIVIDED DOSES 2/2
     Route: 065
     Dates: start: 20100918, end: 20110227

REACTIONS (10)
  - Constipation [Not Recovered/Not Resolved]
  - Erythema [Not Recovered/Not Resolved]
  - Nausea [Unknown]
  - Skin burning sensation [Unknown]
  - Psoriasis [Not Recovered/Not Resolved]
  - Abdominal pain [Not Recovered/Not Resolved]
  - Rash pruritic [Unknown]
  - Injection site mass [Not Recovered/Not Resolved]
  - Dermatitis contact [Unknown]
  - Fungal infection [Unknown]

NARRATIVE: CASE EVENT DATE: 201012
